FAERS Safety Report 14186887 (Version 1)
Quarter: 2017Q4

REPORT INFORMATION
  Report Type: Spontaneous
  Country: US (occurrence: US)
  Receive Date: 20171114
  Receipt Date: 20171114
  Transmission Date: 20180321
  Serious: Yes (Disabling, Other)
  Sender: FDA-Public Use
  Company Number: US-ACCORD-060903

PATIENT
  Age: 31 Year
  Sex: Female

DRUGS (3)
  1. ETOPOSIDE. [Suspect]
     Active Substance: ETOPOSIDE
     Indication: OVARIAN GERM CELL ENDODERMAL SINUS TUMOUR
  2. CARBOPLATIN. [Suspect]
     Active Substance: CARBOPLATIN
     Indication: OVARIAN GERM CELL ENDODERMAL SINUS TUMOUR
  3. ETOPOSIDE. [Suspect]
     Active Substance: ETOPOSIDE
     Indication: OVARIAN GERM CELL ENDODERMAL SINUS TUMOUR
     Dosage: EVERY 21 DAYS
     Route: 048

REACTIONS (2)
  - Deafness [Not Recovered/Not Resolved]
  - Off label use [Unknown]
